FAERS Safety Report 25425497 (Version 2)
Quarter: 2025Q3

REPORT INFORMATION
  Report Type: Report from Study
  Country: US (occurrence: US)
  Receive Date: 20250611
  Receipt Date: 20250810
  Transmission Date: 20251021
  Serious: Yes (Hospitalization, Other)
  Sender: ALEXION PHARMACEUTICALS
  Company Number: US-AstraZeneca-CH-00887615A

PATIENT
  Sex: Female
  Weight: 116.5 kg

DRUGS (1)
  1. CAPIVASERTIB [Suspect]
     Active Substance: CAPIVASERTIB
     Indication: Neoplasm malignant
     Dates: start: 20250609

REACTIONS (7)
  - Diarrhoea [Unknown]
  - Blood glucose decreased [Unknown]
  - Fatigue [Unknown]
  - Dyspnoea [Unknown]
  - Acute kidney injury [Unknown]
  - Anaemia [Unknown]
  - Haemorrhage [Unknown]
